FAERS Safety Report 7962897-8 (Version None)
Quarter: 2011Q4

REPORT INFORMATION
  Report Type: 
  Country: None (occurrence: None)
  Receive Date: 20111207
  Receipt Date: 20111130
  Transmission Date: 20120403
  Serious: Yes (Other)
  Sender: FDA-Public Use
  Company Number: FR-ASTRAZENECA-2011SE72905

PATIENT
  Age: 45 Year
  Sex: Male

DRUGS (7)
  1. TERCIAN [Concomitant]
  2. SULFARLEM [Concomitant]
  3. STABLON [Concomitant]
  4. PRAZEPAM [Concomitant]
  5. RISPERDAL [Concomitant]
  6. QUETIAPINE FUMARATE [Suspect]
     Indication: SCHIZOPHRENIA
     Dosage: EVERY DAY
     Route: 048
     Dates: start: 20111125
  7. TRIMEPRAZINE TARTRATE [Concomitant]

REACTIONS (3)
  - DELUSION OF REFERENCE [None]
  - TRISMUS [None]
  - SUICIDAL IDEATION [None]
